FAERS Safety Report 5181065-9 (Version None)
Quarter: 2006Q4

REPORT INFORMATION
  Report Type: 
  Country: None (occurrence: None)
  Receive Date: 20061212
  Receipt Date: 20061202
  Transmission Date: 20070319
  Serious: Yes (Other)
  Sender: FDA-Public Use
  Company Number: 2006148925

PATIENT
  Age: 45 Year
  Sex: Female
  Weight: 67.586 kg

DRUGS (3)
  1. GEODON [Suspect]
     Dosage: 60 MG (60 MG, 1 IN 1 D), ORAL
     Route: 048
     Dates: start: 20061127
  2. DOMPERIDONE                 (DOMPERIDONE) [Concomitant]
  3. ASPIRIN [Concomitant]

REACTIONS (7)
  - CHEST PAIN [None]
  - CLUMSINESS [None]
  - DIZZINESS [None]
  - FEELING COLD [None]
  - NAUSEA [None]
  - PAIN IN EXTREMITY [None]
  - SENSATION OF HEAVINESS [None]
